FAERS Safety Report 14952520 (Version 1)
Quarter: 2018Q2

REPORT INFORMATION
  Report Type: Spontaneous
  Country: JP (occurrence: JP)
  Receive Date: 20180530
  Receipt Date: 20180530
  Transmission Date: 20180711
  Serious: Yes (Other)
  Sender: FDA-Public Use
  Company Number: JP-PFIZER INC-2018213706

PATIENT

DRUGS (1)
  1. CARDENALIN [Suspect]
     Active Substance: DOXAZOSIN MESYLATE
     Dosage: 8 MG, UNK
     Route: 048

REACTIONS (2)
  - Renal impairment [Unknown]
  - Diarrhoea [Unknown]
